FAERS Safety Report 10228782 (Version 4)
Quarter: 2014Q4

REPORT INFORMATION
  Report Type: Report from Study
  Country: BR (occurrence: BR)
  Receive Date: 20140610
  Receipt Date: 20141028
  Transmission Date: 20150528
  Serious: No
  Sender: FDA-Public Use
  Company Number: BR-BRISTOL-MYERS SQUIBB COMPANY-20977203

PATIENT
  Age: 63 Year
  Sex: Female
  Weight: 64 kg

DRUGS (6)
  1. ERBITUX [Suspect]
     Active Substance: CETUXIMAB
     Indication: COLORECTAL CANCER METASTATIC
     Route: 042
     Dates: start: 20140507, end: 20140521
  2. SYNTHROID [Concomitant]
     Active Substance: LEVOTHYROXINE SODIUM
     Indication: THYROID DISORDER
     Dosage: SINCE 20 YEARS AGO.
  3. OMEPRAZOLE. [Concomitant]
     Active Substance: OMEPRAZOLE
     Indication: NAUSEA
  4. ERBITUX [Suspect]
     Active Substance: CETUXIMAB
     Indication: GASTROINTESTINAL CARCINOMA
     Route: 042
     Dates: start: 20140507, end: 20140521
  5. ANGIPRESS [Concomitant]
     Active Substance: ATENOLOL
     Indication: HYPERTENSION
     Dosage: SINCE 15 YEARS AGO.
  6. SIMVASTATIN. [Concomitant]
     Active Substance: SIMVASTATIN

REACTIONS (11)
  - Nasal dryness [Recovering/Resolving]
  - Skin wound [Recovered/Resolved]
  - Dry skin [Recovering/Resolving]
  - Dermatitis [Recovering/Resolving]
  - Acne [Recovered/Resolved]
  - Pyrexia [Not Recovered/Not Resolved]
  - Dry mouth [Recovering/Resolving]
  - Epistaxis [Not Recovered/Not Resolved]
  - Hypertrichosis [Unknown]
  - Ocular hyperaemia [Recovered/Resolved]
  - Nail bed disorder [Recovering/Resolving]

NARRATIVE: CASE EVENT DATE: 20140521
